FAERS Safety Report 10256502 (Version 1)
Quarter: 2014Q2

REPORT INFORMATION
  Report Type: Report from Study
  Country: MX (occurrence: MX)
  Receive Date: 20140624
  Receipt Date: 20140624
  Transmission Date: 20141212
  Serious: Yes (Hospitalization, Other)
  Sender: FDA-Public Use
  Company Number: MX-JNJFOC-20130412098

PATIENT
  Age: 90 Year
  Sex: Male
  Weight: 62 kg

DRUGS (4)
  1. XARELTO [Suspect]
     Indication: CEREBROVASCULAR ACCIDENT PROPHYLAXIS
     Route: 048
     Dates: start: 20121112, end: 20130129
  2. XARELTO [Suspect]
     Indication: ATRIAL FIBRILLATION
     Route: 048
     Dates: start: 20121112, end: 20130129
  3. MICARDIS [Concomitant]
     Dates: start: 20130415
  4. DABIGATRAN ETEXILATE [Concomitant]
     Dates: start: 20130415

REACTIONS (4)
  - Convulsion [Recovered/Resolved]
  - High frequency ablation [Recovered/Resolved]
  - Dizziness [Recovered/Resolved]
  - Asthenia [Recovered/Resolved]
